FAERS Safety Report 4388101-8 (Version None)
Quarter: 2004Q3

REPORT INFORMATION
  Report Type: 
  Country: None (occurrence: None)
  Receive Date: 20040701
  Receipt Date: 20040608
  Transmission Date: 20050211
  Serious: Yes (Hospitalization)
  Sender: FDA-Public Use
  Company Number: PHBS2004IE07629

PATIENT
  Age: 31 Year
  Sex: Male

DRUGS (6)
  1. CLOZARIL [Suspect]
     Dosage: 400 MG, ONCE/SINGLE
     Route: 048
     Dates: start: 20040608, end: 20040608
  2. DIAZEPAM [Concomitant]
     Dosage: 25 MG/D
     Route: 065
  3. LITHIUM [Concomitant]
     Dosage: 800 MG/D
     Route: 065
  4. HALOPERIDOL [Concomitant]
     Route: 065
  5. VALPROATE SODIUM [Concomitant]
     Dosage: 1250 MG, BID
     Route: 065
  6. KEMADRIN [Concomitant]
     Dosage: UNK, UNK
     Route: 065

REACTIONS (2)
  - ACCIDENTAL EXPOSURE [None]
  - ACCIDENTAL OVERDOSE [None]
